FAERS Safety Report 21886258 (Version 1)
Quarter: 2023Q1

REPORT INFORMATION
  Report Type: Spontaneous
  Country: US (occurrence: None)
  Receive Date: 20230118
  Receipt Date: 20230118
  Transmission Date: 20230417
  Serious: No
  Sender: FDA-Public Use
  Company Number: None

PATIENT
  Age: 55 Year
  Sex: Female

DRUGS (1)
  1. HUMIRA [Suspect]
     Active Substance: ADALIMUMAB
     Indication: Ankylosing spondylitis
     Dosage: INJECT 40MG SUBCUTANEOUSLY EVERY 2 WEEKS IN THE ABDOMEN OR THIGH ROTATING INJECTION SITES AS
     Route: 058
     Dates: start: 202209

REACTIONS (3)
  - COVID-19 [None]
  - Intentional dose omission [None]
  - Nasopharyngitis [None]
